FAERS Safety Report 15530275 (Version 6)
Quarter: 2019Q2

REPORT INFORMATION
  Report Type: Spontaneous
  Country: FR (occurrence: FR)
  Receive Date: 20181018
  Receipt Date: 20190404
  Transmission Date: 20190711
  Serious: Yes (Life-Threatening)
  Sender: FDA-Public Use
  Company Number: FR-MYLANLABS-2018M1078441

PATIENT
  Age: 68 Year
  Sex: Female

DRUGS (6)
  1. HYDROXYZINE [Interacting]
     Active Substance: HYDROXYZINE HYDROCHLORIDE
     Indication: PREMEDICATION
     Dosage: 50 MG, UNK
     Route: 065
  2. RANITIDINE. [Interacting]
     Active Substance: RANITIDINE
     Indication: PREMEDICATION
     Dosage: 300 MG, UNK
     Route: 048
  3. CAELYX [Interacting]
     Active Substance: DOXORUBICIN HYDROCHLORIDE
     Indication: CUTANEOUS T-CELL LYMPHOMA
     Dosage: 0.14 MG, UNK OF PLD/MIN
     Route: 041
  4. METHYLPREDNISOLONE. [Interacting]
     Active Substance: METHYLPREDNISOLONE
     Indication: PREMEDICATION
     Dosage: 120 MG, UNK
     Route: 042
  5. PROPRANOLOL [Interacting]
     Active Substance: PROPRANOLOL HYDROCHLORIDE
     Dosage: UNK
  6. PROPRANOLOL [Suspect]
     Active Substance: PROPRANOLOL HYDROCHLORIDE
     Indication: HEPATIC CIRRHOSIS
     Dosage: 40 MG, BID
     Route: 065

REACTIONS (9)
  - Hypersensitivity [Unknown]
  - Oxygen saturation decreased [Unknown]
  - Off label use [Unknown]
  - Chest discomfort [Unknown]
  - Erythema [Unknown]
  - Drug interaction [Unknown]
  - Product use issue [Unknown]
  - Dyspnoea [Unknown]
  - Product use in unapproved indication [Unknown]
